FAERS Safety Report 6037815-2 (Version None)
Quarter: 2009Q1

REPORT INFORMATION
  Report Type: 
  Country: None (occurrence: None)
  Receive Date: 20090113
  Receipt Date: 20090101
  Transmission Date: 20090719
  Serious: Yes (Other)
  Sender: FDA-Public Use
  Company Number: 100#03#2009-00030

PATIENT
  Age: 58 Year
  Sex: Female

DRUGS (5)
  1. VENLAFAXINE HCL [Suspect]
     Indication: DEPRESSION
     Dosage: 75 MG
  2. VENLAFAXINE HCL [Suspect]
     Indication: INTENTIONAL SELF-INJURY
     Dosage: 75 MG
  3. LINEZOLID [Suspect]
     Indication: STAPHYLOCOCCAL INFECTION
     Dosage: ORAL
     Route: 048
  4. RIFAMPICIN [Concomitant]
  5. VANCOMYCIN [Concomitant]

REACTIONS (5)
  - DRUG INTERACTION [None]
  - HIP ARTHROPLASTY [None]
  - POST PROCEDURAL COMPLICATION [None]
  - SEROTONIN SYNDROME [None]
  - STAPHYLOCOCCAL INFECTION [None]
